FAERS Safety Report 8895383 (Version 2)
Quarter: 2013Q2

REPORT INFORMATION
  Report Type: Spontaneous
  Country: US (occurrence: US)
  Receive Date: 20121107
  Receipt Date: 20130426
  Transmission Date: 20140414
  Serious: Yes (Hospitalization, Other)
  Sender: FDA-Public Use
  Company Number: PHHY2012US101351

PATIENT
  Age: 61 Year
  Sex: Male

DRUGS (2)
  1. MINOCYCLINE [Suspect]
     Indication: ACNE
     Dosage: 100 MG, BID
     Route: 048
  2. CARBIDOPA AND LEVODOPA [Concomitant]
     Indication: PARKINSON^S DISEASE

REACTIONS (12)
  - Fall [Unknown]
  - Dehydration [Recovering/Resolving]
  - Orthostatic hypotension [Recovering/Resolving]
  - Concomitant disease aggravated [Recovering/Resolving]
  - Ataxia [Recovering/Resolving]
  - Asthenia [Recovering/Resolving]
  - Scleral pigmentation [Not Recovered/Not Resolved]
  - Skin discolouration [Not Recovered/Not Resolved]
  - Normochromic normocytic anaemia [Recovering/Resolving]
  - Fatigue [Recovering/Resolving]
  - Dyspnoea [Recovering/Resolving]
  - Nail bed disorder [Not Recovered/Not Resolved]
